FAERS Safety Report 4439877-2 (Version None)
Quarter: 2004Q3

REPORT INFORMATION
  Report Type: 
  Country: None (occurrence: None)
  Receive Date: 20040902
  Receipt Date: 20040823
  Transmission Date: 20050211
  Serious: Yes (Death, Other)
  Sender: FDA-Public Use
  Company Number: TR-BRISTOL-MYERS SQUIBB COMPANY-12679429

PATIENT
  Age: 63 Year
  Sex: Female

DRUGS (4)
  1. PACLITAXEL [Suspect]
     Indication: CERVIX CANCER METASTATIC
     Dosage: 175 MG/M2
     Route: 042
  2. CARBOPLATIN [Suspect]
     Indication: CERVIX CANCER METASTATIC
     Dosage: AUC 5
     Route: 042
  3. CYCLOPHOSPHAMIDE [Suspect]
     Indication: CERVIX CANCER METASTATIC
     Dosage: 500 MG/M2
     Route: 042
  4. RADIATION THERAPY [Suspect]
     Indication: CERVIX CANCER METASTATIC
     Dosage: 180CGY/DAY.  TOTAL DOSE: 4500 CGY TO PELVIS AND 1980 CGY BOOST TO TUMOR.
     Dates: start: 19990517, end: 19990719

REACTIONS (2)
  - CERVIX CANCER METASTATIC [None]
  - GASTROENTERITIS RADIATION [None]
